FAERS Safety Report 9034137 (Version 1)
Quarter: 2013Q1

REPORT INFORMATION
  Report Type: Spontaneous
  Country: US (occurrence: None)
  Receive Date: 20130116
  Receipt Date: 20130116
  Transmission Date: 20140127
  Serious: Yes (Disabling)
  Sender: FDA-Public Use
  Company Number: None

PATIENT
  Age: 63 Year
  Sex: Female
  Weight: 101.61 kg

DRUGS (3)
  1. DEXILANT [Suspect]
     Route: 048
     Dates: start: 20121109, end: 20130113
  2. DEXILANT [Suspect]
     Route: 048
     Dates: start: 20121109, end: 20130113
  3. DEXILANT [Suspect]
     Route: 048
     Dates: start: 20121109, end: 20130113

REACTIONS (4)
  - Chest pain [None]
  - Gastric polyps [None]
  - Duodenal polyp [None]
  - Anal polyp [None]
